FAERS Safety Report 15820764 (Version 1)
Quarter: 2019Q1

REPORT INFORMATION
  Report Type: Spontaneous
  Country: US (occurrence: US)
  Receive Date: 20190111
  Receipt Date: 20190111
  Transmission Date: 20190417
  Serious: No
  Sender: FDA-Public Use
  Company Number: None

PATIENT
  Age: 7 Day
  Sex: Male
  Weight: 1.42 kg

DRUGS (9)
  1. CAFFEINE CITRATE. [Concomitant]
     Active Substance: CAFFEINE CITRATE
  2. CYCLOMYDRIL [Concomitant]
     Active Substance: CYCLOPENTOLATE HYDROCHLORIDE\PHENYLEPHRINE HYDROCHLORIDE
  3. INTERALIPID [Concomitant]
  4. ZINC OXIDE. [Concomitant]
     Active Substance: ZINC OXIDE
  5. ALPROSTADIL. [Suspect]
     Active Substance: ALPROSTADIL
     Indication: PATENT DUCTUS ARTERIOSUS
     Route: 041
     Dates: start: 20181228, end: 20190104
  6. ALPROSTADIL. [Suspect]
     Active Substance: ALPROSTADIL
     Indication: HEART DISEASE CONGENITAL
     Route: 041
     Dates: start: 20181228, end: 20190104
  7. DILUTE MORPHINE [Concomitant]
  8. NACL/HEPARIN [Concomitant]
  9. CRITIC AID [Concomitant]

REACTIONS (1)
  - Therapy change [None]

NARRATIVE: CASE EVENT DATE: 20190104
